FAERS Safety Report 4680850-7 (Version None)
Quarter: 2005Q2

REPORT INFORMATION
  Report Type: 
  Country: None (occurrence: None)
  Receive Date: 20050601
  Receipt Date: 20050601
  Transmission Date: 20051028
  Serious: Yes (Other)
  Sender: FDA-Public Use
  Company Number: None

PATIENT
  Age: 42 Year
  Sex: Female
  Weight: 77.1115 kg

DRUGS (1)
  1. CLIMARA [Suspect]
     Indication: HYSTERECTOMY
     Dosage: 0.25 MG ONE WEEK
     Dates: start: 20050413

REACTIONS (1)
  - APPLICATION SITE DERMATITIS [None]
